FAERS Safety Report 9562616 (Version 1)
Quarter: 2013Q3

REPORT INFORMATION
  Report Type: Spontaneous
  Country: US (occurrence: None)
  Receive Date: 20130926
  Receipt Date: 20130926
  Transmission Date: 20140515
  Serious: Yes (Other)
  Sender: FDA-Public Use
  Company Number: None

PATIENT
  Age: 31 Year
  Sex: Female

DRUGS (1)
  1. TECFIDERA STARTER KIT [Suspect]
     Indication: MULTIPLE SCLEROSIS
     Dosage: BY MOUTH
     Route: 048
     Dates: start: 20130904, end: 20130910

REACTIONS (4)
  - Diarrhoea [None]
  - Flushing [None]
  - Pruritus [None]
  - Suicidal ideation [None]
